FAERS Safety Report 24654755 (Version 2)
Quarter: 2025Q3

REPORT INFORMATION
  Report Type: Report from Study
  Country: US (occurrence: US)
  Receive Date: 20241122
  Receipt Date: 20250810
  Transmission Date: 20251021
  Serious: Yes (Hospitalization, Other)
  Sender: ALEXION PHARMACEUTICALS
  Company Number: US-AstraZeneca-CH-00742477A

PATIENT
  Age: 12 Year
  Sex: Male
  Weight: 46.4 kg

DRUGS (7)
  1. SELUMETINIB [Suspect]
     Active Substance: SELUMETINIB
     Indication: Neurofibromatosis
     Dosage: 10 MILLIGRAM, BID (10 AND 25 MG PER DAY)
     Dates: start: 20230827, end: 20240903
  2. SELUMETINIB [Suspect]
     Active Substance: SELUMETINIB
     Dosage: 40 MILLIGRAM, BID
  3. AQUAPHOR [Concomitant]
     Active Substance: PETROLATUM
     Indication: Lip dry
     Dates: start: 20220131, end: 20240424
  4. NIZORAL [Concomitant]
     Active Substance: KETOCONAZOLE
     Indication: Dry skin
     Dates: start: 20230821, end: 20240311
  5. NIZORAL [Concomitant]
     Active Substance: KETOCONAZOLE
     Indication: Papule
  6. NIZORAL [Concomitant]
     Active Substance: KETOCONAZOLE
     Indication: Pustule
  7. ZOFRAN [Concomitant]
     Active Substance: ONDANSETRON HYDROCHLORIDE
     Indication: Nausea
     Dosage: 0.5 TABLETS, 4 MILLIGRAM, Q8H, PRN
     Dates: start: 20230829, end: 20231219

REACTIONS (3)
  - Haematoma infection [Unknown]
  - Myositis [Unknown]
  - Bone metabolism disorder [Unknown]
